FAERS Safety Report 15571248 (Version 2)
Quarter: 2018Q4

REPORT INFORMATION
  Report Type: Spontaneous
  Country: DE (occurrence: DE)
  Receive Date: 20181031
  Receipt Date: 20181108
  Transmission Date: 20190205
  Serious: No
  Sender: FDA-Public Use
  Company Number: DE-ALLERGAN-1851016US

PATIENT
  Sex: Female

DRUGS (1)
  1. LUMIGAN [Suspect]
     Active Substance: BIMATOPROST
     Indication: GLAUCOMA
     Dosage: UNK, QD
     Route: 047
     Dates: start: 201603

REACTIONS (4)
  - Inappropriate schedule of product administration [Unknown]
  - Dry eye [Unknown]
  - Multiple use of single-use product [Unknown]
  - Hypotension [Unknown]
